FAERS Safety Report 8505806-5 (Version None)
Quarter: 2012Q3

REPORT INFORMATION
  Report Type: 
  Country: None (occurrence: None)
  Receive Date: 20120712
  Receipt Date: 20120709
  Transmission Date: 20120928
  Serious: Yes (Death, Hospitalization)
  Sender: FDA-Public Use
  Company Number: DE-ELI_LILLY_AND_COMPANY-DE201206002871

PATIENT
  Age: 74 Year
  Sex: Male

DRUGS (25)
  1. DIPYRONE TAB [Concomitant]
     Indication: PROPHYLAXIS
     Dosage: 20 DF, UNK
     Dates: start: 20120516, end: 20120516
  2. DIPYRONE TAB [Concomitant]
     Indication: PROPHYLAXIS
     Dosage: UNK
     Dates: end: 20120519
  3. METOCLOPRAMIDE [Concomitant]
     Indication: DYSPHAGIA
     Dosage: 60 DROPS, UNK
     Dates: start: 20120504, end: 20120519
  4. TILIDIN [Concomitant]
     Indication: PROPHYLAXIS
     Dosage: UNK
     Dates: start: 20120517, end: 20120519
  5. APREPITANT [Concomitant]
     Indication: PROPHYLAXIS
     Dosage: 125 MG, PRN
     Dates: start: 20120321, end: 20120411
  6. POTASSIUM CHLORIDE [Concomitant]
     Indication: PROPHYLAXIS
     Dosage: 40 ML, PRN
     Dates: start: 20120321, end: 20120411
  7. DIPYRONE TAB [Concomitant]
     Dosage: 80 DF, UNK
     Dates: start: 20120517, end: 20120519
  8. DEXAMETHASONE [Concomitant]
     Indication: PROPHYLAXIS OF NAUSEA AND VOMITING
     Dosage: 8 MG, QD
     Route: 042
     Dates: start: 20120321, end: 20120411
  9. DIGOXIN [Concomitant]
     Indication: ATRIAL FIBRILLATION
     Dosage: UNK
     Dates: start: 20120130, end: 20120519
  10. CISPLATIN [Suspect]
     Indication: NON-SMALL CELL LUNG CANCER
     Dosage: 60 MG/M2, UNKNOWN
     Route: 042
     Dates: start: 20120321, end: 20120411
  11. ONDANSETRON [Concomitant]
     Indication: PROPHYLAXIS OF NAUSEA AND VOMITING
     Dosage: 8 MG, QD
     Route: 042
     Dates: start: 20120321, end: 20120418
  12. AMLODIPINE [Concomitant]
     Indication: CARDIAC FAILURE
     Dosage: UNK
     Dates: start: 20120130, end: 20120519
  13. ALLOPURINOL [Concomitant]
     Indication: HYPERURICAEMIA
     Dosage: 50 MG, UNK
  14. IBUPROFEN [Concomitant]
     Dosage: 800 MG, UNK
     Dates: start: 20120516, end: 20120519
  15. GEMCITABINE HYDROCHLORIDE [Suspect]
     Indication: NON-SMALL CELL LUNG CANCER
     Dosage: 960 MG/M2, UNKNOWN
     Route: 042
     Dates: start: 20120321, end: 20120418
  16. TAZOBACTAM [Concomitant]
     Indication: C-REACTIVE PROTEIN INCREASED
     Dosage: UNK
     Dates: end: 20120517
  17. ASPIRIN [Concomitant]
     Indication: CORONARY ARTERY DISEASE
     Dosage: 100 MG, UNK
     Dates: start: 20120201, end: 20120513
  18. SIMVASTATIN [Concomitant]
     Indication: HYPERLIPIDAEMIA
     Dosage: UNK
  19. RIVAROXABAN [Concomitant]
     Indication: ATRIAL FIBRILLATION
     Dosage: 10 MG, UNK
     Dates: start: 20120212, end: 20120519
  20. IBUPROFEN [Concomitant]
     Indication: ARTHRALGIA
     Dosage: 400 MG, UNK
     Dates: start: 20120515, end: 20120515
  21. PIPERACILLIN [Concomitant]
     Indication: C-REACTIVE PROTEIN INCREASED
     Dosage: UNK
     Dates: end: 20120517
  22. APREPITANT [Concomitant]
     Dosage: 80 MG, PRN
     Dates: start: 20120321, end: 20120411
  23. MAGNESIUM SULFATE [Concomitant]
     Indication: PROPHYLAXIS
     Dosage: 10 ML, PRN
     Dates: start: 20120321, end: 20120411
  24. FUROSEMIDE [Concomitant]
     Indication: PROPHYLAXIS
     Dosage: 20 MG, PRN
     Dates: start: 20120130, end: 20120519
  25. PANTOPRAZOLE [Concomitant]
     Indication: PROPHYLAXIS
     Dosage: 20 MG, UNK

REACTIONS (2)
  - GENERAL PHYSICAL HEALTH DETERIORATION [None]
  - EMPYEMA [None]
